FAERS Safety Report 14245343 (Version 1)
Quarter: 2017Q4

REPORT INFORMATION
  Report Type: Spontaneous
  Country: US (occurrence: US)
  Receive Date: 20171202
  Receipt Date: 20171202
  Transmission Date: 20180321
  Serious: No
  Sender: FDA-Public Use
  Company Number: US-ENDO PHARMACEUTICALS INC-2017-005599

PATIENT
  Sex: Male
  Weight: 90.7 kg

DRUGS (2)
  1. XIAFLEX [Suspect]
     Active Substance: COLLAGENASE CLOSTRIDIUM HISTOLYTICUM
     Dosage: UNK MG, SECOND CYCLE OF TWO INJECTIONS
     Route: 026
     Dates: start: 201706, end: 2017
  2. XIAFLEX [Suspect]
     Active Substance: COLLAGENASE CLOSTRIDIUM HISTOLYTICUM
     Indication: PEYRONIE^S DISEASE
     Dosage: UNK MG, FIRST CYCLE OF TWO INJECTIONS
     Route: 026
     Dates: start: 201702

REACTIONS (7)
  - Penis disorder [Not Recovered/Not Resolved]
  - Injection site swelling [Unknown]
  - Penile size reduced [Not Recovered/Not Resolved]
  - Inappropriate schedule of drug administration [Recovered/Resolved]
  - Pain [Recovered/Resolved]
  - Injection site bruising [Unknown]
  - Erectile dysfunction [Unknown]

NARRATIVE: CASE EVENT DATE: 2017
